FAERS Safety Report 24698360 (Version 1)
Quarter: 2024Q4

REPORT INFORMATION
  Report Type: Spontaneous
  Country: US (occurrence: US)
  Receive Date: 20241204
  Receipt Date: 20241204
  Transmission Date: 20250115
  Serious: No
  Sender: PRIMUS PHARMACEUTICALS
  Company Number: US-PRIMUS-2024-US-058316

PATIENT
  Age: 84 Year
  Sex: Female

DRUGS (1)
  1. IMPOYZ [Suspect]
     Active Substance: CLOBETASOL PROPIONATE
     Indication: Skin ulcer
     Dosage: APPLY A THIN LAYER TO THE AFFECTED OPEN WOUNDS ONCE DAILY
     Route: 061
     Dates: start: 202407, end: 202407

REACTIONS (2)
  - Application site pain [Recovered/Resolved]
  - Product use in unapproved indication [Recovered/Resolved]

NARRATIVE: CASE EVENT DATE: 20240701
